FAERS Safety Report 9739453 (Version 3)
Quarter: 2014Q1

REPORT INFORMATION
  Report Type: Report from Study
  Country: JP (occurrence: JP)
  Receive Date: 20131209
  Receipt Date: 20140106
  Transmission Date: 20141002
  Serious: Yes (Hospitalization)
  Sender: FDA-Public Use
  Company Number: JP-UCBSA-097662

PATIENT
  Age: 56 Year
  Sex: Female
  Weight: 103 kg

DRUGS (4)
  1. CIMZIA [Suspect]
     Indication: RHEUMATOID ARTHRITIS
     Dosage: FORM :SYRINGE.
     Route: 058
     Dates: start: 20130604, end: 20130702
  2. RHEUMATREX [Concomitant]
     Route: 048
  3. AZULFIDINE-EN [Concomitant]
     Route: 048
     Dates: end: 20130827
  4. CELECOX [Concomitant]
     Indication: RHEUMATOID ARTHRITIS
     Dosage: 200 MG DAILY
     Route: 048

REACTIONS (1)
  - Urinary tract infection [Recovering/Resolving]
